FAERS Safety Report 9261657 (Version 13)
Quarter: 2017Q4

REPORT INFORMATION
  Report Type: Report from Study
  Country: JP (occurrence: JP)
  Receive Date: 20130429
  Receipt Date: 20171103
  Transmission Date: 20180321
  Serious: Yes (Hospitalization)
  Sender: FDA-Public Use
  Company Number: JP-PFIZER INC-2013124504

PATIENT
  Age: 79 Year
  Sex: Male
  Weight: 79 kg

DRUGS (12)
  1. LACTIC ACID BACTERIA [Concomitant]
     Indication: CONSTIPATION
     Dosage: 1 G, 3X/DAY
     Route: 048
     Dates: start: 2011, end: 20130408
  2. MAGNESIUM OXIDE. [Concomitant]
     Active Substance: MAGNESIUM OXIDE
     Indication: CONSTIPATION
     Dosage: 0.4 G, 3X/DAY
     Route: 048
     Dates: start: 2011
  3. CLONAZEPAM. [Concomitant]
     Active Substance: CLONAZEPAM
     Indication: CONVULSION PROPHYLAXIS
     Dosage: 0.5 MG, 1X/DAY
     Route: 048
     Dates: start: 2011
  4. HYDROCHLOROTHIAZIDE. [Concomitant]
     Active Substance: HYDROCHLOROTHIAZIDE
     Indication: HYPERTENSION
     Dosage: 12.5 MG, 1X/DAY
     Route: 048
     Dates: start: 2011, end: 20130408
  5. CARVEDILOL. [Concomitant]
     Active Substance: CARVEDILOL
     Indication: HYPERTENSION
     Dosage: 5 MG, 1X/DAY
     Route: 048
     Dates: start: 2011
  6. AMLODIPINE BESILATE [Concomitant]
     Active Substance: AMLODIPINE BESYLATE
     Indication: HYPERTENSION
     Dosage: 5 MG, 3X/DAY
     Route: 048
     Dates: start: 2013
  7. SODIUM RABEPRAZOLE [Concomitant]
     Active Substance: RABEPRAZOLE SODIUM
     Indication: GASTRITIS PROPHYLAXIS
     Dosage: 10 MG, 1X/DAY
     Route: 048
     Dates: start: 2011
  8. DONEPEZIL HYDROCHLORIDE. [Concomitant]
     Active Substance: DONEPEZIL HYDROCHLORIDE
     Indication: CEREBRAL INFARCTION
     Dosage: 5 MG, 1X/DAY
     Route: 048
     Dates: start: 2011
  9. TELMISARTAN. [Concomitant]
     Active Substance: TELMISARTAN
     Indication: HYPERTENSION
     Dosage: 80 MG, 1X/DAY
     Route: 048
     Dates: start: 2011, end: 20130407
  10. AXITINIB [Suspect]
     Active Substance: AXITINIB
     Indication: RENAL CELL CARCINOMA
     Dosage: UNK
     Dates: start: 20130328, end: 20130413
  11. TAMSULOSIN HYDROCHLORIDE. [Concomitant]
     Active Substance: TAMSULOSIN HYDROCHLORIDE
     Indication: BENIGN PROSTATIC HYPERPLASIA
     Dosage: 0.2 MG, 1X/DAY
     Route: 048
     Dates: start: 2011
  12. MOSAPRIDE CITRATE HYDRATE [Concomitant]
     Active Substance: MOSAPRIDE CITRATE DIHYDRATE
     Indication: GASTRITIS PROPHYLAXIS
     Dosage: 5 MG, 3X/DAY
     Route: 048
     Dates: start: 2011

REACTIONS (1)
  - Toxic skin eruption [Recovered/Resolved]

NARRATIVE: CASE EVENT DATE: 20130410
